FAERS Safety Report 23716576 (Version 2)
Quarter: 2024Q2

REPORT INFORMATION
  Report Type: Spontaneous
  Country: US (occurrence: None)
  Receive Date: 20240408
  Receipt Date: 20240429
  Transmission Date: 20240716
  Serious: No
  Sender: FDA-Public Use
  Company Number: 2024A081946

PATIENT
  Sex: Male

DRUGS (1)
  1. SYMBICORT [Suspect]
     Active Substance: BUDESONIDE\FORMOTEROL FUMARATE DIHYDRATE
     Dosage: 160 UG, UNKNOWN UNKNOWN
     Route: 055
     Dates: start: 2019

REACTIONS (6)
  - Malaise [Unknown]
  - Extra dose administered [Unknown]
  - Product prescribing issue [Unknown]
  - Product packaging quantity issue [Unknown]
  - Device use issue [Unknown]
  - Wrong technique in device usage process [Unknown]
